FAERS Safety Report 17739993 (Version 1)
Quarter: 2020Q2

REPORT INFORMATION
  Report Type: Spontaneous
  Country: US (occurrence: US)
  Receive Date: 20200503
  Receipt Date: 20200503
  Transmission Date: 20200714
  Serious: Yes (Other)
  Sender: FDA-Public Use
  Company Number: None

PATIENT
  Age: 56 Year
  Sex: Male
  Weight: 99 kg

DRUGS (21)
  1. METHOCARBAMOL. [Concomitant]
     Active Substance: METHOCARBAMOL
  2. CELECOXIB. [Concomitant]
     Active Substance: CELECOXIB
  3. VITAMIN B12 [Concomitant]
     Active Substance: CYANOCOBALAMIN
  4. PAXIL [Suspect]
     Active Substance: PAROXETINE HYDROCHLORIDE
     Indication: DEPRESSION
     Route: 048
  5. DRONABINOL. [Concomitant]
     Active Substance: DRONABINOL
  6. CLONAZEPAM. [Concomitant]
     Active Substance: CLONAZEPAM
  7. CPAP TENS [Concomitant]
  8. B6 [Concomitant]
     Active Substance: PYRIDOXINE HYDROCHLORIDE
  9. R-ALPHA LIPOIC ACID [Concomitant]
  10. TOLNAFTATE 1% CREAM [Concomitant]
     Active Substance: TOLNAFTATE
  11. D-3 [Concomitant]
     Active Substance: CHOLECALCIFEROL
  12. BACLOFEN. [Concomitant]
     Active Substance: BACLOFEN
  13. ROSUVASTATIN. [Concomitant]
     Active Substance: ROSUVASTATIN
  14. CALCIUM [Concomitant]
     Active Substance: CALCIUM
  15. B1 [Concomitant]
  16. CALCIUM CITRATE [Concomitant]
     Active Substance: CALCIUM CITRATE
  17. FLUTICASONE. [Concomitant]
     Active Substance: FLUTICASONE
  18. ACETAMINOPHEN. [Concomitant]
     Active Substance: ACETAMINOPHEN
  19. SENNA [Concomitant]
     Active Substance: SENNA LEAF\SENNOSIDES\SENNOSIDES A AND B
  20. FOLIC ACID. [Concomitant]
     Active Substance: FOLIC ACID
  21. DOCUSATE SODIUM. [Concomitant]
     Active Substance: DOCUSATE SODIUM

REACTIONS (3)
  - Aggression [None]
  - Anger [None]
  - Legal problem [None]

NARRATIVE: CASE EVENT DATE: 20030820
